FAERS Safety Report 21892349 (Version 1)
Quarter: 2023Q1

REPORT INFORMATION
  Report Type: Spontaneous
  Country: US (occurrence: US)
  Receive Date: 20230120
  Receipt Date: 20230120
  Transmission Date: 20230418
  Serious: No
  Sender: FDA-Public Use
  Company Number: US-JAZZ-2022-US-037412

PATIENT
  Age: 39 Year
  Sex: Male

DRUGS (1)
  1. XYREM [Suspect]
     Active Substance: SODIUM OXYBATE
     Indication: Spontaneous penile erection
     Dosage: 2.75 GRAM, BID

REACTIONS (3)
  - Apathy [Unknown]
  - Depression [Recovered/Resolved]
  - Off label use [Unknown]
